FAERS Safety Report 7010868-0 (Version None)
Quarter: 2010Q3

REPORT INFORMATION
  Report Type: 
  Country: None (occurrence: None)
  Receive Date: 20100923
  Receipt Date: 20100923
  Transmission Date: 20110219
  Serious: Yes (Life-Threatening, Hospitalization)
  Sender: FDA-Public Use
  Company Number: None

PATIENT
  Age: 68 Year
  Sex: Female
  Weight: 90.7194 kg

DRUGS (2)
  1. METFORMIN HCL [Suspect]
     Indication: TYPE 2 DIABETES MELLITUS
     Dosage: 1000MG  2X/DAY PO
     Route: 048
     Dates: start: 20000101, end: 20100322
  2. DIOVAN HCT [Suspect]
     Indication: HYPERTENSION
     Dosage: 350 MG 1X/DAY PO
     Route: 048
     Dates: start: 20000101, end: 20100322

REACTIONS (6)
  - DEHYDRATION [None]
  - DIARRHOEA [None]
  - LOSS OF CONSCIOUSNESS [None]
  - NAUSEA [None]
  - RENAL FAILURE ACUTE [None]
  - VOMITING [None]
